FAERS Safety Report 5978829-8 (Version None)
Quarter: 2008Q4

REPORT INFORMATION
  Report Type: 
  Country: None (occurrence: None)
  Receive Date: 20081204
  Receipt Date: 20081201
  Transmission Date: 20090506
  Serious: Yes (Life-Threatening, Hospitalization)
  Sender: FDA-Public Use
  Company Number: PHEH2008US10695

PATIENT
  Age: 47 Year
  Sex: Female

DRUGS (2)
  1. TRILEPTAL [Suspect]
     Indication: PARTIAL SEIZURES
     Dosage: 900 MG, BID
     Route: 048
     Dates: start: 20080101, end: 20081101
  2. KEPPRA [Suspect]
     Indication: PARTIAL SEIZURES
     Dosage: 1500 MG, BID

REACTIONS (11)
  - ALANINE AMINOTRANSFERASE INCREASED [None]
  - ASPARTATE AMINOTRANSFERASE INCREASED [None]
  - CEREBROVASCULAR ACCIDENT [None]
  - HYPOTHERMIA [None]
  - LIVER DISORDER [None]
  - MECHANICAL VENTILATION [None]
  - MENTAL STATUS CHANGES [None]
  - RENAL FAILURE [None]
  - RESPIRATORY FAILURE [None]
  - RHABDOMYOLYSIS [None]
  - UNRESPONSIVE TO STIMULI [None]
